FAERS Safety Report 14213599 (Version 2)
Quarter: 2018Q1

REPORT INFORMATION
  Report Type: Spontaneous
  Country: US (occurrence: US)
  Receive Date: 20171122
  Receipt Date: 20180123
  Transmission Date: 20180508
  Serious: Yes (Hospitalization)
  Sender: FDA-Public Use
  Company Number: US-PFIZER INC-2017501801

PATIENT
  Age: 63 Year
  Sex: Female

DRUGS (1)
  1. SIROLIMUS. [Suspect]
     Active Substance: SIROLIMUS
     Dosage: 0.5 MG, UNK

REACTIONS (2)
  - Abdominal discomfort [Recovered/Resolved]
  - Reaction to excipient [Recovered/Resolved]
